FAERS Safety Report 4462740-8 (Version None)
Quarter: 2004Q3

REPORT INFORMATION
  Report Type: 
  Country: None (occurrence: None)
  Receive Date: 20040930
  Receipt Date: 20040922
  Transmission Date: 20050211
  Serious: Yes (Hospitalization, Other)
  Sender: FDA-Public Use
  Company Number: US-JNJFOC-20040806710

PATIENT
  Sex: Female
  Weight: 100.25 kg

DRUGS (6)
  1. REMICADE [Suspect]
     Indication: CROHN'S DISEASE
     Dosage: RECEIVED A DOSE APPROXIMATLEY EVERY 2 TO 3 MONTHS.  HAD RECEIVED A DOSE ON 10-MAR-2004.
     Route: 042
  2. 6MP [Suspect]
     Indication: CROHN'S DISEASE
     Dosage: 50-75 MG/D
     Route: 049
  3. PROTONIX [Concomitant]
  4. AMITRIPTYLINE HCL [Concomitant]
     Indication: DEPRESSION
  5. PAXIL [Concomitant]
     Indication: DEPRESSION
  6. ASACOL [Concomitant]
     Indication: CROHN'S DISEASE

REACTIONS (4)
  - ACUTE MYELOID LEUKAEMIA [None]
  - HAEMATOCHEZIA [None]
  - HAEMORRHOIDAL HAEMORRHAGE [None]
  - PYREXIA [None]
